FAERS Safety Report 7803806-1 (Version None)
Quarter: 2011Q4

REPORT INFORMATION
  Report Type: 
  Country: None (occurrence: None)
  Receive Date: 20111010
  Receipt Date: 20110929
  Transmission Date: 20120403
  Serious: Yes (Other)
  Sender: FDA-Public Use
  Company Number: US-ELI_LILLY_AND_COMPANY-US201109008767

PATIENT
  Age: 63 Year
  Sex: Female

DRUGS (2)
  1. LANTUS [Concomitant]
     Indication: TYPE 2 DIABETES MELLITUS
     Dosage: 22 U, QD
     Dates: start: 20110930
  2. HUMALOG [Suspect]
     Indication: TYPE 2 DIABETES MELLITUS
     Dosage: UNK

REACTIONS (4)
  - EYE DISORDER [None]
  - FEELING HOT [None]
  - DIABETIC COMA [None]
  - BLOOD GLUCOSE FLUCTUATION [None]
